FAERS Safety Report 16026536 (Version 1)
Quarter: 2019Q1

REPORT INFORMATION
  Report Type: Spontaneous
  Country: US (occurrence: US)
  Receive Date: 20190302
  Receipt Date: 20190302
  Transmission Date: 20190418
  Serious: No
  Sender: FDA-Public Use
  Company Number: US-TARO-2018TAR00238

PATIENT
  Sex: Male
  Weight: 67.12 kg

DRUGS (1)
  1. LEVETIRACETAM ORAL SOLUTION 100MG/ML [Suspect]
     Active Substance: LEVETIRACETAM
     Dosage: UNK

REACTIONS (2)
  - Drug ineffective [Recovered/Resolved]
  - Product substitution issue [Recovered/Resolved]
